FAERS Safety Report 5485855-4 (Version None)
Quarter: 2007Q4

REPORT INFORMATION
  Report Type: 
  Country: None (occurrence: None)
  Receive Date: 20071015
  Receipt Date: 20071001
  Transmission Date: 20080405
  Serious: Yes (Hospitalization)
  Sender: FDA-Public Use
  Company Number: US-ELI_LILLY_AND_COMPANY-US200710000744

PATIENT
  Age: 62 Year
  Sex: Male

DRUGS (14)
  1. CYMBALTA [Suspect]
     Dosage: 60 MG, UNK
     Dates: start: 20060301, end: 20070101
  2. QUINIDINE HCL [Concomitant]
     Dosage: 324 MG, UNK
     Dates: start: 19990101
  3. LYRICA [Concomitant]
     Dosage: 300 MG, UNK
     Dates: start: 20060301, end: 20070101
  4. DIGITEK [Concomitant]
     Indication: CARDIAC DISORDER
     Dosage: 0.125 MG, UNK
     Dates: start: 19990101
  5. DIOVAN [Concomitant]
     Indication: BLOOD PRESSURE
     Dosage: 80 MG, UNK
     Dates: start: 19990101
  6. HYDRALAZINE HCL [Concomitant]
     Indication: CARDIAC DISORDER
     Dosage: 10 MG, UNK
     Dates: start: 19990101
  7. WARFARIN SODIUM [Concomitant]
     Indication: ANTICOAGULANT THERAPY
     Dosage: 7.5 MG, UNK
     Dates: start: 19990101
  8. POTASSIUM CHLORIDE [Concomitant]
     Indication: CARDIAC DISORDER
     Dosage: 20 MEQ, UNK
     Dates: start: 19990101
  9. GLIPIZIDE [Concomitant]
     Indication: DIABETES MELLITUS
     Dosage: 10 MG, UNK
     Dates: start: 19990101
  10. FUROSEMIDE [Concomitant]
     Indication: DIURETIC THERAPY
     Dosage: 80 MG, UNK
     Dates: start: 19990101
  11. ASPIRIN [Concomitant]
     Indication: ANTICOAGULANT THERAPY
     Dosage: 81 MG, UNK
     Dates: start: 19990101
  12. LIPITOR [Concomitant]
     Indication: BLOOD CHOLESTEROL
     Dosage: 10 MG, UNK
     Dates: start: 19990101
  13. LUNESTA [Concomitant]
     Indication: SLEEP DISORDER
     Dosage: 2 MG, UNK
  14. GABAPENTIN [Concomitant]
     Indication: NEURALGIA
     Dosage: 1200 MG, UNK

REACTIONS (4)
  - DIZZINESS [None]
  - FALL [None]
  - HEAD INJURY [None]
  - SELF INJURIOUS BEHAVIOUR [None]
